FAERS Safety Report 12494231 (Version 1)
Quarter: 2016Q2

REPORT INFORMATION
  Report Type: Spontaneous
  Country: CZ (occurrence: CZ)
  Receive Date: 20160623
  Receipt Date: 20160623
  Transmission Date: 20160815
  Serious: Yes (Other)
  Sender: FDA-Public Use
  Company Number: CZ-BAYER-2016-120663

PATIENT
  Sex: Female

DRUGS (1)
  1. MIRENA [Suspect]
     Active Substance: LEVONORGESTREL
     Dosage: 20 MCG/24HR, CONT
     Route: 015
     Dates: start: 201509, end: 201606

REACTIONS (6)
  - Genital haemorrhage [None]
  - Vaginal haemorrhage [None]
  - Abdominal pain [None]
  - Uterine haemorrhage [None]
  - Pain in extremity [None]
  - Vaginal haemorrhage [None]

NARRATIVE: CASE EVENT DATE: 2015
